FAERS Safety Report 22180565 (Version 2)
Quarter: 2023Q2

REPORT INFORMATION
  Report Type: Spontaneous
  Country: IT (occurrence: IT)
  Receive Date: 20230406
  Receipt Date: 20230410
  Transmission Date: 20230722
  Serious: Yes (Hospitalization, Other)
  Sender: FDA-Public Use
  Company Number: None

PATIENT

DRUGS (2)
  1. VOLTAREN [Suspect]
     Active Substance: DICLOFENAC SODIUM
     Indication: Inflammation
     Dosage: 150 MG, QD (150 MG / DAY)
     Route: 048
  2. NIMESULIDE [Suspect]
     Active Substance: NIMESULIDE
     Indication: Inflammation
     Dosage: 100 MG, QD (100 MG/DAY)
     Route: 048

REACTIONS (2)
  - Melaena [Recovering/Resolving]
  - Rectal haemorrhage [Recovering/Resolving]

NARRATIVE: CASE EVENT DATE: 20230124
